FAERS Safety Report 8485963-X (Version None)
Quarter: 2012Q3

REPORT INFORMATION
  Report Type: 
  Country: None (occurrence: None)
  Receive Date: 20120703
  Receipt Date: 20120630
  Transmission Date: 20120928
  Serious: Yes (Death, Other)
  Sender: FDA-Public Use
  Company Number: IT-BRISTOL-MYERS SQUIBB COMPANY-16606329

PATIENT
  Age: 97 Year
  Sex: Female

DRUGS (4)
  1. LASIX [Concomitant]
     Dosage: 2 DOSAGE FORM = 2 TABLETS. LATER INTRAVENOUS FUROSEMIDE (20 MG/DAY)
  2. LEVOTHYROXINE SODIUM [Concomitant]
     Indication: HYPOTHYROIDISM
     Dosage: 1 TABLET
  3. COUMADIN [Suspect]
     Indication: ATRIAL FIBRILLATION
     Dosage: DRUG SUSPENDED IN MAR2012
     Route: 048
     Dates: start: 20110101
  4. LANOXIN [Concomitant]
     Dosage: DOSE REDUCED TO 0.0625MG

REACTIONS (6)
  - FACIAL BONES FRACTURE [None]
  - ANAEMIA [None]
  - INTERNATIONAL NORMALISED RATIO INCREASED [None]
  - EPISTAXIS [None]
  - GENERAL PHYSICAL HEALTH DETERIORATION [None]
  - BRONCHOPNEUMONIA [None]
